FAERS Safety Report 10793176 (Version 3)
Quarter: 2015Q3

REPORT INFORMATION
  Report Type: Spontaneous
  Country: AT (occurrence: AT)
  Receive Date: 20150213
  Receipt Date: 20150720
  Transmission Date: 20151125
  Serious: Yes (Hospitalization)
  Sender: FDA-Public Use
  Company Number: AT-ELI_LILLY_AND_COMPANY-AT201502001172

PATIENT
  Age: 20 Year
  Sex: Male

DRUGS (3)
  1. ZYPREXA [Suspect]
     Active Substance: OLANZAPINE
     Indication: MANIA
     Dosage: 30 MG, UNKNOWN
     Route: 065
     Dates: start: 201411, end: 20150129
  2. SEROQUEL [Suspect]
     Active Substance: QUETIAPINE FUMARATE
     Indication: MANIA
     Dosage: 75 MG, UNKNOWN
     Route: 065
     Dates: start: 201411, end: 20150129
  3. CISORDINOL DEPOT [Concomitant]
     Active Substance: ZUCLOPENTHIXOL
     Dosage: 300 MG, OTHER
     Route: 030
     Dates: start: 201411, end: 20150110

REACTIONS (5)
  - Prescribed overdose [Unknown]
  - Atelectasis [Unknown]
  - Claustrophobia [Unknown]
  - Panic attack [Unknown]
  - Pericarditis [Recovering/Resolving]

NARRATIVE: CASE EVENT DATE: 201501
